FAERS Safety Report 6357562-7 (Version None)
Quarter: 2009Q3

REPORT INFORMATION
  Report Type: 
  Country: None (occurrence: None)
  Receive Date: 20090916
  Receipt Date: 20090907
  Transmission Date: 20100115
  Serious: Yes (Other)
  Sender: FDA-Public Use
  Company Number: PHHY2009JP38880

PATIENT

DRUGS (3)
  1. NEORAL [Suspect]
     Indication: PEMPHIGOID
     Dosage: 2.5 MG/KG DAILY
     Route: 048
  2. NEORAL [Suspect]
     Dosage: 2 MG/KG DAILY
     Route: 048
  3. STEROIDS NOS [Concomitant]

REACTIONS (3)
  - C-REACTIVE PROTEIN INCREASED [None]
  - POLYURIA [None]
  - PYREXIA [None]
